FAERS Safety Report 5827092-7 (Version None)
Quarter: 2008Q3

REPORT INFORMATION
  Report Type: 
  Country: None (occurrence: None)
  Receive Date: 20080730
  Receipt Date: 20080730
  Transmission Date: 20090109
  Serious: Yes (Hospitalization)
  Sender: FDA-Public Use
  Company Number: D0058189A

PATIENT

DRUGS (1)
  1. ARIXTRA [Suspect]
     Route: 058
     Dates: start: 20080201

REACTIONS (2)
  - DYSAESTHESIA [None]
  - NIPPLE PAIN [None]
